FAERS Safety Report 14185392 (Version 5)
Quarter: 2017Q4

REPORT INFORMATION
  Report Type: Spontaneous
  Country: JP (occurrence: JP)
  Receive Date: 20171114
  Receipt Date: 20171206
  Transmission Date: 20180321
  Serious: Yes (Death, Life-Threatening, Other)
  Sender: FDA-Public Use
  Company Number: JP-009507513-1710JPN003464J

PATIENT
  Age: 61 Year
  Sex: Male
  Weight: 50 kg

DRUGS (5)
  1. NEXIUM [Suspect]
     Active Substance: ESOMEPRAZOLE MAGNESIUM
     Indication: GASTROOESOPHAGEAL REFLUX DISEASE
     Dosage: 20 MG, QD
     Route: 048
     Dates: start: 20171002, end: 20171031
  2. AZOSEMIDE [Suspect]
     Active Substance: AZOSEMIDE
     Indication: PLEURAL EFFUSION
     Dosage: 30 MG, QD
     Route: 048
     Dates: start: 20171002, end: 20171031
  3. FEBURIC [Suspect]
     Active Substance: FEBUXOSTAT
     Indication: HYPERURICAEMIA
     Dosage: 20 MG, QD
     Route: 048
     Dates: start: 20170406, end: 20171031
  4. ZOLINZA [Suspect]
     Active Substance: VORINOSTAT
     Indication: MYCOSIS FUNGOIDES
     Dosage: 400 MG, QD
     Route: 048
     Dates: start: 20171019, end: 20171025
  5. SPIRONOLACTONE. [Suspect]
     Active Substance: SPIRONOLACTONE
     Indication: HYPOKALAEMIA
     Dosage: 25 MG, QD
     Route: 048
     Dates: start: 20171006, end: 20171031

REACTIONS (3)
  - Sudden death [Fatal]
  - Hypocalcaemia [Unknown]
  - Thrombocytopenia [Unknown]

NARRATIVE: CASE EVENT DATE: 20171026
